FAERS Safety Report 15645198 (Version 1)
Quarter: 2018Q4

REPORT INFORMATION
  Report Type: Spontaneous
  Country: US (occurrence: US)
  Receive Date: 20181121
  Receipt Date: 20181121
  Transmission Date: 20190205
  Serious: Yes (Death, Hospitalization)
  Sender: FDA-Public Use
  Company Number: US-HERON THERAPEUTICS, INC-HRTX-2018-000492

PATIENT
  Age: 71 Year
  Sex: Female

DRUGS (2)
  1. CINVANTI [Suspect]
     Active Substance: APREPITANT
     Indication: PRODUCT USED FOR UNKNOWN INDICATION
     Dosage: UNK
     Dates: start: 20180828, end: 20180828
  2. CINVANTI [Suspect]
     Active Substance: APREPITANT
     Dosage: UNK
     Dates: start: 20181009, end: 20181009

REACTIONS (11)
  - Anaemia [Unknown]
  - Metabolic acidosis [Unknown]
  - Shock [Unknown]
  - Myocardial ischaemia [Unknown]
  - Pulseless electrical activity [Fatal]
  - Angina pectoris [Unknown]
  - Acute pulmonary oedema [Unknown]
  - Atrial fibrillation [Unknown]
  - Respiratory failure [Unknown]
  - Pneumonia [Unknown]
  - Cardiac arrest [Fatal]

NARRATIVE: CASE EVENT DATE: 201810
